FAERS Safety Report 24764278 (Version 1)
Quarter: 2024Q4

REPORT INFORMATION
  Report Type: Report from Study
  Country: US (occurrence: US)
  Receive Date: 20241223
  Receipt Date: 20241223
  Transmission Date: 20250115
  Serious: Yes (Other)
  Sender: TAKEDA
  Company Number: US-TAKEDA-US202022640

PATIENT
  Sex: Male

DRUGS (2)
  1. HUMAN IMMUNOGLOBULIN G [Suspect]
     Active Substance: HUMAN IMMUNOGLOBULIN G
     Indication: Primary immunodeficiency syndrome
     Dosage: 40 GRAM, MONTHLY
  2. HUMAN IMMUNOGLOBULIN G [Suspect]
     Active Substance: HUMAN IMMUNOGLOBULIN G
     Indication: Immunodeficiency common variable

REACTIONS (8)
  - Pneumonia [Recovering/Resolving]
  - Sinus disorder [Unknown]
  - Insurance issue [Unknown]
  - Vitamin D deficiency [Unknown]
  - Inappropriate schedule of product administration [Unknown]
  - Sinusitis [Recovering/Resolving]
  - Back pain [Unknown]
  - Arthralgia [Unknown]
